FAERS Safety Report 17354765 (Version 2)
Quarter: 2020Q2

REPORT INFORMATION
  Report Type: Report from Study
  Country: US (occurrence: US)
  Receive Date: 20200131
  Receipt Date: 20200403
  Transmission Date: 20200713
  Serious: Yes (Other)
  Sender: FDA-Public Use
  Company Number: US-GILEAD-2020-0449146

PATIENT
  Age: 45 Year
  Sex: Female

DRUGS (1)
  1. AMBRISENTAN [Suspect]
     Active Substance: AMBRISENTAN
     Indication: PRODUCT USED FOR UNKNOWN INDICATION
     Dosage: 10 MG, QD
     Route: 048
     Dates: start: 20191209

REACTIONS (9)
  - Neck pain [Unknown]
  - Fatigue [Not Recovered/Not Resolved]
  - Limb injury [Unknown]
  - Halo vision [Unknown]
  - Contusion [Unknown]
  - Syncope [Recovered/Resolved]
  - Balance disorder [Unknown]
  - Dizziness [Not Recovered/Not Resolved]
  - Head injury [Unknown]
